FAERS Safety Report 5994986-1 (Version None)
Quarter: 2008Q4

REPORT INFORMATION
  Report Type: 
  Country: None (occurrence: None)
  Receive Date: 20081210
  Receipt Date: 20081124
  Transmission Date: 20090506
  Serious: Yes (Hospitalization)
  Sender: FDA-Public Use
  Company Number: 20085903

PATIENT
  Age: 25 Year
  Sex: Male

DRUGS (11)
  1. BACLOFEN [Suspect]
     Indication: MUSCLE SPASTICITY
     Dosage: 24-84.5 MCG, DAILY, INTRATHECAL
     Route: 037
     Dates: start: 20071003, end: 20080124
  2. ORAL BACLOFEN [Concomitant]
  3. POLLAKIS [Concomitant]
  4. LIORESAL [Concomitant]
  5. POLLAKIS [Concomitant]
  6. CELFAMEZIN ALPHA [Concomitant]
  7. VANCOMYCIN [Concomitant]
  8. HABEKACIN [Concomitant]
  9. HABEKACIN [Concomitant]
  10. CEFDINIR [Concomitant]
  11. GENTACIN [Concomitant]

REACTIONS (7)
  - DEVICE FAILURE [None]
  - DEVICE MIGRATION [None]
  - POLLAKIURIA [None]
  - PYREXIA [None]
  - URINARY INCONTINENCE [None]
  - WOUND INFECTION STAPHYLOCOCCAL [None]
  - WOUND SECRETION [None]
